FAERS Safety Report 5824514-2 (Version None)
Quarter: 2008Q3

REPORT INFORMATION
  Report Type: 
  Country: None (occurrence: None)
  Receive Date: 20080728
  Receipt Date: 20080715
  Transmission Date: 20090109
  Serious: Yes (Hospitalization)
  Sender: FDA-Public Use
  Company Number: US-TEVA-174573USA

PATIENT
  Sex: Female

DRUGS (11)
  1. TRAZODONE HYDROCHLORIDE 50MG TABLETS [Suspect]
     Route: 048
  2. GATIFLOXACIN [Suspect]
  3. FAMCICLOVIR [Suspect]
  4. CLARITHROMYCIN [Suspect]
  5. OXYCODONE HCL [Suspect]
  6. TYLOX [Suspect]
  7. QUINAPRIL HCL [Suspect]
  8. ESCITALOPRAM OXALATE [Suspect]
  9. REPAGLINIDE [Suspect]
  10. ROSIGLITAZONE MALEATE [Suspect]
  11. OMEPRAZOLE [Suspect]

REACTIONS (4)
  - CONFUSIONAL STATE [None]
  - DIABETIC KETOACIDOSIS [None]
  - PAIN [None]
  - RESTLESS LEGS SYNDROME [None]
